FAERS Safety Report 24899312 (Version 1)
Quarter: 2025Q1

REPORT INFORMATION
  Report Type: Spontaneous
  Country: US (occurrence: US)
  Receive Date: 20250129
  Receipt Date: 20250129
  Transmission Date: 20250409
  Serious: Yes (Hospitalization, Other)
  Sender: IBSA INSTITUT BIOCHIMIQUE
  Company Number: US-IBSA PHARMA INC.-2025IBS000026

PATIENT

DRUGS (1)
  1. TIROSINT [Suspect]
     Active Substance: LEVOTHYROXINE SODIUM
     Indication: Hypothyroidism
     Dosage: 75 MICROGRAM, QD

REACTIONS (16)
  - COVID-19 [None]
  - Pneumonia [None]
  - Coma [Unknown]
  - Renal failure [None]
  - Respiratory failure [None]
  - Hypertension [None]
  - Liver disorder [None]
  - Cardiac disorder [None]
  - Neck injury [None]
  - Dehydration [Unknown]
  - Mobility decreased [None]
  - Sneezing [Unknown]
  - Nasal congestion [None]
  - Oxygen saturation decreased [None]
  - Dyspnoea [None]
  - Feeling abnormal [None]

NARRATIVE: CASE EVENT DATE: 20220101
